FAERS Safety Report 5241978-6 (Version None)
Quarter: 2007Q1

REPORT INFORMATION
  Report Type: 
  Country: None (occurrence: None)
  Receive Date: 20070220
  Receipt Date: 20070208
  Transmission Date: 20070707
  Serious: Yes (Hospitalization, Other)
  Sender: FDA-Public Use
  Company Number: DE-PFIZER INC-2007011065

PATIENT
  Sex: Male

DRUGS (1)
  1. CABASERIL [Suspect]
     Indication: PARKINSON'S DISEASE
     Route: 048

REACTIONS (6)
  - BLOOD COUNT ABNORMAL [None]
  - GASTRITIS HAEMORRHAGIC [None]
  - HAEMATOCHEZIA [None]
  - LUNG NEOPLASM [None]
  - PLEURISY [None]
  - TUBERCULOSIS [None]
